FAERS Safety Report 20596497 (Version 2)
Quarter: 2022Q4

REPORT INFORMATION
  Report Type: Report from Study
  Country: JP (occurrence: JP)
  Receive Date: 20220315
  Receipt Date: 20221101
  Transmission Date: 20230113
  Serious: Yes (Death)
  Sender: FDA-Public Use
  Company Number: JP-PFIZER INC-202200390616

PATIENT
  Sex: Female

DRUGS (8)
  1. IRINOTECAN HYDROCHLORIDE [Suspect]
     Active Substance: IRINOTECAN HYDROCHLORIDE
     Indication: Neuroblastoma
     Dosage: 100 MG/M2, CYCLIC (2-H INFUSION) 3 SEPARATE INFUSION ON DAYS 1 THROUGH 3
  2. ETOPOSIDE [Suspect]
     Active Substance: ETOPOSIDE
     Indication: Neuroblastoma
     Dosage: 80 MG/M2, CYCLIC (2-H INFUSION) 3 SEPARATE INFUSION ON DAYS 1 THROUGH 3
  3. CARBOPLATIN [Suspect]
     Active Substance: CARBOPLATIN
     Indication: Neuroblastoma
     Dosage: 80 MG/M2, CYCLIC (2-H INFUSION) 3 SEPARATE INFUSION ON DAYS 1 THROUGH 3
  4. BUSULFAN [Concomitant]
     Active Substance: BUSULFAN
     Indication: Stem cell transplant
     Dosage: UNK
  5. MELPHALAN [Concomitant]
     Active Substance: MELPHALAN
     Indication: Stem cell transplant
     Dosage: UNK
  6. SULFAMETHOXAZOLE\TRIMETHOPRIM [Concomitant]
     Active Substance: SULFAMETHOXAZOLE\TRIMETHOPRIM
     Indication: Infection prophylaxis
     Route: 048
  7. FLUCONAZOLE [Concomitant]
     Active Substance: FLUCONAZOLE
     Indication: Infection prophylaxis
     Route: 048
  8. CEFPODOXIME [Concomitant]
     Active Substance: CEFPODOXIME
     Indication: Prophylaxis against diarrhoea
     Route: 048

REACTIONS (2)
  - Death [Fatal]
  - Lung disorder [Fatal]
